FAERS Safety Report 5874076-9 (Version None)
Quarter: 2008Q3

REPORT INFORMATION
  Report Type: 
  Country: None (occurrence: None)
  Receive Date: 20080908
  Receipt Date: 20080903
  Transmission Date: 20090109
  Serious: Yes (Disabling, Other)
  Sender: FDA-Public Use
  Company Number: US-ASTRAZENECA-2008UW18036

PATIENT
  Age: 61 Year
  Sex: Female

DRUGS (1)
  1. TOPROL-XL [Suspect]
     Route: 048

REACTIONS (5)
  - ARTHRITIS [None]
  - CEREBROVASCULAR ACCIDENT [None]
  - FIBROMYALGIA [None]
  - GAIT DISTURBANCE [None]
  - HYPERTENSION [None]
